FAERS Safety Report 11718549 (Version 1)
Quarter: 2015Q4

REPORT INFORMATION
  Report Type: Spontaneous
  Country: NO (occurrence: NO)
  Receive Date: 20151110
  Receipt Date: 20151110
  Transmission Date: 20160304
  Serious: Yes (Disabling, Other)
  Sender: FDA-Public Use
  Company Number: NO-ACTAVIS-2015-23603

PATIENT
  Sex: Male

DRUGS (5)
  1. STESOLID [Suspect]
     Active Substance: DIAZEPAM
     Indication: ANXIETY
     Dosage: 25 MG, DAILY
     Route: 065
  2. TRAMAGETIC [Concomitant]
     Active Substance: TRAMADOL
     Indication: PRODUCT USED FOR UNKNOWN INDICATION
     Dosage: UNK
     Route: 065
  3. SOMADRIL (UNKNOWN) [Suspect]
     Active Substance: CARISOPRODOL
     Indication: ANXIETY
     Dosage: UNK
     Route: 065
     Dates: start: 20060726, end: 20070706
  4. PARALGIN FORTE                     /00116401/ [Concomitant]
     Indication: PRODUCT USED FOR UNKNOWN INDICATION
     Dosage: UNK
     Route: 065
  5. STESOLID [Suspect]
     Active Substance: DIAZEPAM
     Dosage: 5 MG, DAILY
     Route: 065
     Dates: start: 20020419

REACTIONS (6)
  - Insomnia [Not Recovered/Not Resolved]
  - Anxiety [Not Recovered/Not Resolved]
  - Parent-child problem [Not Recovered/Not Resolved]
  - Social problem [Not Recovered/Not Resolved]
  - Divorced [Not Recovered/Not Resolved]
  - Depression [Not Recovered/Not Resolved]
